FAERS Safety Report 21703758 (Version 1)
Quarter: 2022Q4

REPORT INFORMATION
  Report Type: Spontaneous
  Country: US (occurrence: US)
  Receive Date: 20221209
  Receipt Date: 20221209
  Transmission Date: 20230112
  Serious: Yes (Hospitalization)
  Sender: FDA-Public Use
  Company Number: US-HETERO-HET2022US03040

PATIENT
  Age: 64 Year
  Sex: Male

DRUGS (1)
  1. VALACYCLOVIR [Suspect]
     Active Substance: VALACYCLOVIR HYDROCHLORIDE
     Indication: Herpes zoster
     Dosage: 1000 MG FOR EVERY 8 HOURS
     Route: 065

REACTIONS (5)
  - Hypothermia [Unknown]
  - Leukocytosis [Unknown]
  - Neurotoxicity [Unknown]
  - Encephalopathy [Recovering/Resolving]
  - Hypertension [Unknown]
